FAERS Safety Report 4349726-9 (Version None)
Quarter: 2004Q1

REPORT INFORMATION
  Report Type: 
  Country: None (occurrence: None)
  Receive Date: 20040329
  Receipt Date: 20040126
  Transmission Date: 20041129
  Serious: No
  Sender: FDA-Public Use
  Company Number: USA040157592

PATIENT
  Age: 37 Year
  Sex: Male
  Weight: 89 kg

DRUGS (3)
  1. STRATTERA [Suspect]
     Indication: DISTURBANCE IN ATTENTION
     Dosage: 80 MG/DAY
     Dates: start: 20040121
  2. ZYRTEC [Concomitant]
  3. ALLEGRA [Concomitant]

REACTIONS (3)
  - DIZZINESS [None]
  - INSOMNIA [None]
  - THINKING ABNORMAL [None]
